FAERS Safety Report 13694697 (Version 1)
Quarter: 2017Q2

REPORT INFORMATION
  Report Type: Report from Study
  Country: US (occurrence: US)
  Receive Date: 20170627
  Receipt Date: 20170627
  Transmission Date: 20170830
  Serious: Yes (Hospitalization, Other)
  Sender: FDA-Public Use
  Company Number: US-PFIZER INC-2017270257

PATIENT
  Age: 93 Year
  Sex: Female

DRUGS (2)
  1. PROPOFOL. [Suspect]
     Active Substance: PROPOFOL
     Dosage: UNK
  2. VALPROATE [Interacting]
     Active Substance: VALPROIC ACID
     Dosage: 3 G, DAILY

REACTIONS (1)
  - Drug interaction [Unknown]
